FAERS Safety Report 7786530-3 (Version None)
Quarter: 2011Q3

REPORT INFORMATION
  Report Type: 
  Country: None (occurrence: None)
  Receive Date: 20110929
  Receipt Date: 20110923
  Transmission Date: 20111222
  Serious: Yes (Life-Threatening)
  Sender: FDA-Public Use
  Company Number: US-GLAXOSMITHKLINE-A0945816A

PATIENT
  Age: 47 Year
  Sex: Female

DRUGS (2)
  1. AZITHROMYCIN [Concomitant]
  2. VENTOLIN HFA [Suspect]
     Indication: ASTHMA
     Route: 055
     Dates: start: 20110920

REACTIONS (2)
  - PRODUCT QUALITY ISSUE [None]
  - DYSPNOEA [None]
